FAERS Safety Report 5505253-4 (Version None)
Quarter: 2007Q4

REPORT INFORMATION
  Report Type: 
  Country: None (occurrence: None)
  Receive Date: 20071031
  Receipt Date: 20071017
  Transmission Date: 20080405
  Serious: Yes (Death, Hospitalization)
  Sender: FDA-Public Use
  Company Number: 163023ISR

PATIENT
  Age: 70 Year
  Sex: Female

DRUGS (3)
  1. FLUDARABINE [Suspect]
  2. CYCLOPHOSPHAMIDE [Suspect]
  3. EVEROLIMUS [Suspect]

REACTIONS (7)
  - DISEASE PROGRESSION [None]
  - EPSTEIN-BARR VIRUS INFECTION [None]
  - FATIGUE [None]
  - LUNG INFILTRATION [None]
  - LYMPHOPROLIFERATIVE DISORDER [None]
  - MULTI-ORGAN FAILURE [None]
  - NECROSIS [None]
